FAERS Safety Report 23553948 (Version 1)
Quarter: 2024Q1

REPORT INFORMATION
  Report Type: Spontaneous
  Country: CA (occurrence: CA)
  Receive Date: 20240222
  Receipt Date: 20240222
  Transmission Date: 20240410
  Serious: Yes (Life-Threatening)
  Sender: FDA-Public Use
  Company Number: CA-FreseniusKabi-FK202402732

PATIENT
  Age: 76 Year
  Sex: Male

DRUGS (1)
  1. AMIODARONE [Suspect]
     Active Substance: AMIODARONE
     Indication: Cardiac flutter
     Dosage: DOSAGE FORM-NOT SPECIFIED
     Route: 042

REACTIONS (4)
  - Cardiac arrest [Unknown]
  - Dizziness [Unknown]
  - Feeling hot [Unknown]
  - Loss of consciousness [Unknown]
